FAERS Safety Report 8271719-X (Version None)
Quarter: 2012Q2

REPORT INFORMATION
  Report Type: 
  Country: None (occurrence: None)
  Receive Date: 20120410
  Receipt Date: 20120402
  Transmission Date: 20120825
  Serious: Yes (Death, Hospitalization)
  Sender: FDA-Public Use
  Company Number: FR-MERCK-1203FRA00093

PATIENT
  Age: 75 Year
  Sex: Female

DRUGS (14)
  1. ZOLPIDEM TARTRATE [Concomitant]
     Route: 065
  2. VERAPAMIL HYDROCHLORIDE [Concomitant]
     Route: 065
  3. FLUINDIONE [Concomitant]
     Route: 065
  4. BROMAZEPAM [Concomitant]
     Route: 065
  5. VENLAFAXINE HYDROCHLORIDE [Concomitant]
     Route: 065
  6. ETIFOXINE HYDROCHLORIDE [Concomitant]
     Route: 065
  7. DESLORATADINE [Concomitant]
     Route: 065
  8. JANUMET [Suspect]
     Indication: TYPE 2 DIABETES MELLITUS
     Route: 048
  9. GLICLAZIDE [Concomitant]
     Route: 065
  10. ATENOLOL [Concomitant]
     Route: 065
  11. LEVOTHYROXINE SODIUM [Concomitant]
     Route: 065
  12. ZOCOR [Concomitant]
     Route: 065
  13. FUROSEMIDE [Concomitant]
     Route: 065
  14. BEVACIZUMAB AND PACLITAXEL [Concomitant]
     Indication: METASTASES TO LIVER
     Route: 065
     Dates: start: 20120101

REACTIONS (1)
  - LACTIC ACIDOSIS [None]
